FAERS Safety Report 4659615-8 (Version None)
Quarter: 2005Q2

REPORT INFORMATION
  Report Type: 
  Country: None (occurrence: None)
  Receive Date: 20050411
  Receipt Date: 20050221
  Transmission Date: 20051028
  Serious: Yes (Other)
  Sender: FDA-Public Use
  Company Number: 396351

PATIENT
  Sex: Male

DRUGS (2)
  1. FUZEON [Suspect]
     Dates: start: 20030615
  2. AMOXICILLIN [Concomitant]

REACTIONS (1)
  - RASH [None]
